FAERS Safety Report 8793006 (Version 1)
Quarter: 2012Q4

REPORT INFORMATION
  Report Type: 
  Country: US (occurrence: US)
  Receive Date: 20120918
  Receipt Date: 20120918
  Transmission Date: 20130627
  Serious: No
  Sender: FDA-Public Use
  Company Number: US-ASTRAZENECA-2012SE69944

PATIENT
  Age: 61 Year
  Sex: Male
  Weight: 79.4 kg

DRUGS (3)
  1. SYMBICORT [Suspect]
     Indication: ASTHMA
     Dosage: 160/4.5 MCG, 2 PUFFS, DAILY
     Route: 055
     Dates: start: 2010
  2. AVADART [Concomitant]
     Indication: PROSTATIC DISORDER
  3. SINGULAIR [Concomitant]
     Indication: ASTHMA

REACTIONS (2)
  - Prostatic disorder [Unknown]
  - Off label use [Unknown]
